FAERS Safety Report 24243010 (Version 1)
Quarter: 2024Q3

REPORT INFORMATION
  Report Type: Spontaneous
  Country: ES (occurrence: ES)
  Receive Date: 20240823
  Receipt Date: 20240823
  Transmission Date: 20241016
  Serious: Yes (Hospitalization, Other)
  Sender: RANBAXY
  Company Number: ES-SUN PHARMACEUTICAL INDUSTRIES LTD-2024RR-463962

PATIENT
  Age: 76 Year
  Sex: Male

DRUGS (4)
  1. SERTRALINE [Interacting]
     Active Substance: SERTRALINE HYDROCHLORIDE
     Indication: Anxiety
     Dosage: UNK
     Route: 048
     Dates: start: 20240307
  2. IPRATROPIUM BROMIDE [Interacting]
     Active Substance: IPRATROPIUM BROMIDE\IPRATROPIUM BROMIDE ANHYDROUS
     Indication: Respiratory tract infection
     Dosage: UNK
     Route: 065
     Dates: start: 20240307
  3. IPRATROPIUM BROMIDE [Interacting]
     Active Substance: IPRATROPIUM BROMIDE\IPRATROPIUM BROMIDE ANHYDROUS
     Indication: Asthma
  4. QUETIAPINE [Interacting]
     Active Substance: QUETIAPINE
     Indication: Agitation
     Dosage: UNK
     Route: 048
     Dates: start: 20240307

REACTIONS (1)
  - Anticholinergic syndrome [Recovered/Resolved]

NARRATIVE: CASE EVENT DATE: 20240307
